FAERS Safety Report 16907598 (Version 3)
Quarter: 2019Q4

REPORT INFORMATION
  Report Type: Spontaneous
  Country: DE (occurrence: DE)
  Receive Date: 20191011
  Receipt Date: 20191213
  Transmission Date: 20200122
  Serious: Yes (Hospitalization, Other)
  Sender: FDA-Public Use
  Company Number: DE-TORRENT-00015653

PATIENT
  Age: 17 Year
  Sex: Female
  Weight: 69 kg

DRUGS (1)
  1. CETIRIZINE [Suspect]
     Active Substance: CETIRIZINE HYDROCHLORIDE
     Indication: SEASONAL ALLERGY
     Dosage: DAILY DOSE: 20 MG MILLGRAM(S) EVERY DAYS , QD
     Route: 048

REACTIONS (3)
  - Dizziness [Unknown]
  - Cardiovascular disorder [Unknown]
  - Headache [Unknown]

NARRATIVE: CASE EVENT DATE: 20190602
